FAERS Safety Report 7239224-7 (Version None)
Quarter: 2011Q1

REPORT INFORMATION
  Report Type: 
  Country: None (occurrence: None)
  Receive Date: 20110121
  Receipt Date: 20110113
  Transmission Date: 20110831
  Serious: Yes (Hospitalization)
  Sender: FDA-Public Use
  Company Number: US-ABBOTT-11P-163-0697672-00

PATIENT
  Sex: Female

DRUGS (14)
  1. POTASSIUM [Concomitant]
     Indication: MINERAL SUPPLEMENTATION
  2. TRAMADOL HCL [Concomitant]
     Indication: ARTHRALGIA
  3. LIPITOR [Concomitant]
     Indication: BLOOD CHOLESTEROL INCREASED
  4. LISINOPRIL [Concomitant]
     Indication: HYPERTENSION
  5. METOPROLOL [Concomitant]
     Indication: HYPERTENSION
  6. FLUOXETINE [Concomitant]
     Indication: ANXIETY
  7. ALBUTEROL [Concomitant]
     Indication: DYSPNOEA
     Dosage: NEBULIZER
  8. METFORMIN [Concomitant]
     Indication: GLUCOSE TOLERANCE IMPAIRED
  9. SPIRIVA [Concomitant]
     Indication: DYSPNOEA
  10. PREDNISONE [Concomitant]
     Indication: RHEUMATOID ARTHRITIS
     Dates: start: 20101201
  11. HUMIRA [Suspect]
     Indication: RHEUMATOID ARTHRITIS
  12. PLAVIX [Concomitant]
     Indication: PRODUCT USED FOR UNKNOWN INDICATION
  13. GLIPIZIDE [Concomitant]
     Indication: GLUCOSE TOLERANCE IMPAIRED
  14. PROMETHAZINE [Concomitant]
     Indication: NAUSEA

REACTIONS (12)
  - COUGH [None]
  - VOMITING [None]
  - GASTROOESOPHAGEAL REFLUX DISEASE [None]
  - JOINT SWELLING [None]
  - DIARRHOEA [None]
  - CHEST PAIN [None]
  - GASTRIC DISORDER [None]
  - PARANASAL SINUS HYPERSECRETION [None]
  - PYREXIA [None]
  - JOINT STIFFNESS [None]
  - FLUID RETENTION [None]
  - GOUT [None]
